FAERS Safety Report 26097461 (Version 2)
Quarter: 2025Q4

REPORT INFORMATION
  Report Type: Report from Study
  Country: US (occurrence: US)
  Receive Date: 20251127
  Receipt Date: 20251231
  Transmission Date: 20260117
  Serious: Yes (Hospitalization, Other)
  Sender: ALEXION PHARMACEUTICALS
  Company Number: US-AstraZeneca-CH-01000762A

PATIENT
  Sex: Female

DRUGS (1)
  1. RAVULIZUMAB [Suspect]
     Active Substance: RAVULIZUMAB
     Indication: Myasthenia gravis
     Dosage: UNK
     Route: 065

REACTIONS (8)
  - Myasthenia gravis [Unknown]
  - Syncope [Unknown]
  - Retinal disorder [Unknown]
  - Asthenia [Unknown]
  - Red blood cell count decreased [Unknown]
  - Head discomfort [Unknown]
  - Balance disorder [Unknown]
  - Anaemia [Unknown]
